FAERS Safety Report 6905628-2 (Version None)
Quarter: 2010Q3

REPORT INFORMATION
  Report Type: 
  Country: None (occurrence: None)
  Receive Date: 20100804
  Receipt Date: 20100730
  Transmission Date: 20110219
  Serious: Yes (Death, Hospitalization)
  Sender: FDA-Public Use
  Company Number: GB-SANOFI-AVENTIS-2010SA040998

PATIENT
  Age: 61 Year
  Sex: Male

DRUGS (10)
  1. CLEXANE [Suspect]
     Route: 058
     Dates: start: 20100531, end: 20100531
  2. DALTEPARIN SODIUM [Suspect]
     Route: 065
     Dates: start: 20100111
  3. DALTEPARIN SODIUM [Suspect]
     Dosage: DOSE:15000 UNIT(S)
     Route: 058
     Dates: start: 20100602, end: 20100607
  4. DALTEPARIN SODIUM [Suspect]
     Dosage: DOSE:5000 UNIT(S)
     Route: 058
     Dates: start: 20100610, end: 20100613
  5. CODEINE LINCTUS [Concomitant]
  6. IBUPROFEN TABLETS [Concomitant]
     Dates: start: 20100401, end: 20100605
  7. OMEPRAZOLE [Concomitant]
     Dates: start: 20091231, end: 20100615
  8. PREDNISOLONE [Concomitant]
     Dates: start: 20091231, end: 20100602
  9. ERYTHROMYCIN [Concomitant]
     Dates: start: 20100517
  10. GAVISCON [Concomitant]
     Dates: start: 20100517

REACTIONS (3)
  - DISEASE PROGRESSION [None]
  - LUNG CANCER METASTATIC [None]
  - PULMONARY HAEMORRHAGE [None]
